FAERS Safety Report 17840026 (Version 1)
Quarter: 2020Q2

REPORT INFORMATION
  Report Type: Spontaneous
  Country: US (occurrence: US)
  Receive Date: 20200529
  Receipt Date: 20200529
  Transmission Date: 20200714
  Serious: No
  Sender: FDA-Public Use
  Company Number: US-ACCORD-132452

PATIENT
  Sex: Female

DRUGS (1)
  1. CLONAZEPAM ACCORD [Suspect]
     Active Substance: CLONAZEPAM
     Indication: ANXIETY
     Dosage: STRENGTH: 1 MG, TOTAL 4.25 MG DAILY
     Route: 048

REACTIONS (5)
  - Heart rate increased [Not Recovered/Not Resolved]
  - Drug ineffective [Unknown]
  - Product substitution issue [Unknown]
  - Abnormal behaviour [Not Recovered/Not Resolved]
  - Muscular weakness [Not Recovered/Not Resolved]
